FAERS Safety Report 16803611 (Version 1)
Quarter: 2019Q3

REPORT INFORMATION
  Report Type: Report from Study
  Country: JP (occurrence: JP)
  Receive Date: 20190913
  Receipt Date: 20190913
  Transmission Date: 20191005
  Serious: Yes (Other)
  Sender: FDA-Public Use
  Company Number: JP-TEVA-2019-JP-1108493

PATIENT
  Age: 61 Year
  Sex: Female

DRUGS (3)
  1. PACLITAXEL. [Suspect]
     Active Substance: PACLITAXEL
     Indication: MALIGNANT MELANOMA
     Dosage: 12 COURSES
     Route: 042
  2. CARBOPLATIN. [Suspect]
     Active Substance: CARBOPLATIN
     Indication: MALIGNANT MELANOMA
     Dosage: 12 COURSES
     Route: 042
  3. IPILIMUMAB [Suspect]
     Active Substance: IPILIMUMAB
     Indication: MALIGNANT MELANOMA
     Dosage: 4 COURSES
     Route: 065

REACTIONS (7)
  - Rash [Unknown]
  - Alanine aminotransferase increased [Unknown]
  - Adrenal insufficiency [Unknown]
  - Neutropenia [Recovering/Resolving]
  - Aspartate aminotransferase increased [Unknown]
  - Neuropathy peripheral [Unknown]
  - Alopecia [Unknown]
